FAERS Safety Report 9373767 (Version 3)
Quarter: 2013Q4

REPORT INFORMATION
  Report Type: Spontaneous
  Country: AR (occurrence: AR)
  Receive Date: 20130628
  Receipt Date: 20131219
  Transmission Date: 20140711
  Serious: Yes (Other)
  Sender: FDA-Public Use
  Company Number: AR-AMGEN-ARGSP2013045296

PATIENT
  Age: 31 Year
  Sex: Female

DRUGS (3)
  1. ENBREL [Suspect]
     Indication: RHEUMATOID ARTHRITIS
     Dosage: 50 MG, WEEKLY
     Route: 065
     Dates: start: 20080602, end: 201208
  2. CALCIUM [Concomitant]
     Dosage: UNK
  3. ARTRAIT                            /00113801/ [Concomitant]
     Dosage: UNK

REACTIONS (1)
  - Papillary thyroid cancer [Not Recovered/Not Resolved]
